FAERS Safety Report 26146299 (Version 1)
Quarter: 2025Q4

REPORT INFORMATION
  Report Type: Spontaneous
  Country: US (occurrence: US)
  Receive Date: 20251211
  Receipt Date: 20251211
  Transmission Date: 20260117
  Serious: Yes (Hospitalization)
  Sender: TEVA
  Company Number: US-TEVA-VS-3399489

PATIENT
  Age: 17 Year
  Sex: Female

DRUGS (5)
  1. MORPHINE [Suspect]
     Active Substance: MORPHINE
     Indication: Product used for unknown indication
     Dosage: INGESTED EIGHT TABLETS OF CONTROLLED-RELEASE
     Route: 048
  2. OLANZAPINE [Suspect]
     Active Substance: OLANZAPINE
     Indication: Product used for unknown indication
     Dosage: INGESTED 8 TABLETS
     Route: 048
  3. HYDROCODONE [Suspect]
     Active Substance: HYDROCODONE
     Indication: Product used for unknown indication
     Dosage: INGESTED 20 TABLETS
     Route: 048
  4. ACETAMINOPHEN [Suspect]
     Active Substance: ACETAMINOPHEN
     Indication: Product used for unknown indication
     Route: 048
  5. FLUOXETINE [Suspect]
     Active Substance: FLUOXETINE HYDROCHLORIDE
     Indication: Product used for unknown indication
     Dosage: INGESTED 20 TABLETS
     Route: 048

REACTIONS (8)
  - Toxicity to various agents [Recovered/Resolved]
  - Respiratory depression [Recovered/Resolved]
  - Intentional overdose [Unknown]
  - Bradypnoea [Recovered/Resolved]
  - Tachycardia [Recovered/Resolved]
  - Hypopnoea [Recovered/Resolved]
  - Depression [Recovered/Resolved]
  - Depressed level of consciousness [Recovered/Resolved]
